FAERS Safety Report 13112439 (Version 1)
Quarter: 2017Q1

REPORT INFORMATION
  Report Type: Spontaneous
  Country: CA (occurrence: CA)
  Receive Date: 20170113
  Receipt Date: 20170113
  Transmission Date: 20170428
  Serious: Yes (Other)
  Sender: FDA-Public Use
  Company Number: CA-ROCHE-1878400

PATIENT
  Age: 76 Year
  Sex: Female

DRUGS (35)
  1. PLAQUENIL [Suspect]
     Active Substance: HYDROXYCHLOROQUINE SULFATE
     Route: 065
  2. ACETAMINOPHEN. [Concomitant]
     Active Substance: ACETAMINOPHEN
  3. RITUXAN [Concomitant]
     Active Substance: RITUXIMAB
     Route: 065
  4. SYNTHROID [Concomitant]
     Active Substance: LEVOTHYROXINE SODIUM
  5. URISPAS [Concomitant]
     Active Substance: FLAVOXATE HYDROCHLORIDE
     Route: 065
  6. METHOTREXATE. [Suspect]
     Active Substance: METHOTREXATE
     Indication: PRODUCT USED FOR UNKNOWN INDICATION
     Route: 065
  7. ENABLEX [Concomitant]
     Active Substance: DARIFENACIN HYDROBROMIDE
     Route: 065
  8. CODEINE [Concomitant]
     Active Substance: CODEINE
  9. OXYNEO [Concomitant]
     Active Substance: OXYCODONE
     Route: 065
  10. RESTASIS [Concomitant]
     Active Substance: CYCLOSPORINE
  11. ORENCIA [Suspect]
     Active Substance: ABATACEPT
     Indication: PRODUCT USED FOR UNKNOWN INDICATION
     Route: 065
  12. PLAQUENIL [Suspect]
     Active Substance: HYDROXYCHLOROQUINE SULFATE
     Indication: PRODUCT USED FOR UNKNOWN INDICATION
     Route: 065
  13. KADIAN [Concomitant]
     Active Substance: MORPHINE SULFATE
     Route: 065
  14. XELJANZ [Suspect]
     Active Substance: TOFACITINIB CITRATE
     Indication: PRODUCT USED FOR UNKNOWN INDICATION
     Route: 065
  15. HYDROMORPHONE [Concomitant]
     Active Substance: HYDROMORPHONE
  16. KINERET [Concomitant]
     Active Substance: ANAKINRA
     Route: 065
  17. LOPERAMIDE [Concomitant]
     Active Substance: LOPERAMIDE
  18. OMNARIS [Concomitant]
     Active Substance: CICLESONIDE
  19. TRIMETHOPRIM. [Concomitant]
     Active Substance: TRIMETHOPRIM
     Route: 065
  20. PANTOLOC [Concomitant]
     Active Substance: PANTOPRAZOLE SODIUM
     Route: 065
  21. ACTEMRA [Suspect]
     Active Substance: TOCILIZUMAB
     Indication: PRODUCT USED FOR UNKNOWN INDICATION
     Route: 065
  22. ENBREL [Suspect]
     Active Substance: ETANERCEPT
     Indication: RHEUMATOID ARTHRITIS
     Route: 065
  23. HUMIRA [Suspect]
     Active Substance: ADALIMUMAB
     Indication: PRODUCT USED FOR UNKNOWN INDICATION
     Route: 065
  24. BENADRYL [Concomitant]
     Active Substance: DIPHENHYDRAMINE HYDROCHLORIDE
  25. CORTISONE [Concomitant]
     Active Substance: CORTISONE\HYDROCORTISONE
  26. DILAUDID [Concomitant]
     Active Substance: HYDROMORPHONE HYDROCHLORIDE
     Route: 065
  27. KENALOG (CANADA) [Concomitant]
     Dosage: SUSPENSION FOR INJECTION
     Route: 065
  28. LASIX [Concomitant]
     Active Substance: FUROSEMIDE
  29. NORFLEX [Concomitant]
     Active Substance: ORPHENADRINE CITRATE
  30. VAGIFEM [Concomitant]
     Active Substance: ESTRADIOL
     Route: 065
  31. ARAVA [Suspect]
     Active Substance: LEFLUNOMIDE
     Indication: PRODUCT USED FOR UNKNOWN INDICATION
     Route: 065
  32. REMICADE [Suspect]
     Active Substance: INFLIXIMAB
     Indication: PRODUCT USED FOR UNKNOWN INDICATION
     Dosage: POWDER FOR INJECTION
     Route: 065
  33. SODIUM AUROTHIOMALATE [Suspect]
     Active Substance: GOLD SODIUM THIOMALATE
     Indication: PRODUCT USED FOR UNKNOWN INDICATION
     Route: 065
  34. ATIVAN [Concomitant]
     Active Substance: LORAZEPAM
  35. DEXAMETHASONE. [Concomitant]
     Active Substance: DEXAMETHASONE

REACTIONS (16)
  - Leukopenia [Unknown]
  - Peripheral swelling [Unknown]
  - Arthralgia [Unknown]
  - Liver function test abnormal [Unknown]
  - Drug effect incomplete [Unknown]
  - Infection [Unknown]
  - Joint swelling [Unknown]
  - Pneumonia viral [Unknown]
  - Fibromyalgia [Unknown]
  - Anaemia [Unknown]
  - Arthritis [Unknown]
  - Blood cholesterol increased [Unknown]
  - Drug ineffective [Unknown]
  - Herpes zoster [Unknown]
  - Soft tissue disorder [Unknown]
  - Synovitis [Unknown]
